FAERS Safety Report 16973568 (Version 2)
Quarter: 2020Q1

REPORT INFORMATION
  Report Type: Spontaneous
  Country: US (occurrence: US)
  Receive Date: 20191030
  Receipt Date: 20200106
  Transmission Date: 20200409
  Serious: No
  Sender: FDA-Public Use
  Company Number: US-PFIZER INC-2019470272

PATIENT
  Age: 76 Year
  Sex: Male
  Weight: 112.47 kg

DRUGS (1)
  1. LYRICA [Suspect]
     Active Substance: PREGABALIN
     Indication: NEUROPATHY PERIPHERAL
     Dosage: 100 MG, TWICE DAILY
     Dates: start: 2017

REACTIONS (1)
  - Abdominal pain [Recovered/Resolved]
